FAERS Safety Report 6508893-9 (Version None)
Quarter: 2009Q4

REPORT INFORMATION
  Report Type: 
  Country: None (occurrence: None)
  Receive Date: 20091221
  Receipt Date: 20090810
  Transmission Date: 20100525
  Serious: No
  Sender: FDA-Public Use
  Company Number: US-ASTRAZENECA-2009SE07631

PATIENT
  Age: 29897 Day
  Sex: Male
  Weight: 67.1 kg

DRUGS (3)
  1. CRESTOR [Suspect]
     Route: 048
  2. MICROVAN [Concomitant]
  3. DIOVAN [Concomitant]

REACTIONS (2)
  - BLISTER [None]
  - RASH [None]
